FAERS Safety Report 6531605-X (Version None)
Quarter: 2010Q1

REPORT INFORMATION
  Report Type: 
  Country: None (occurrence: None)
  Receive Date: 20100108
  Receipt Date: 20091228
  Transmission Date: 20100710
  Serious: Yes (Hospitalization)
  Sender: FDA-Public Use
  Company Number: FR-PFIZER INC-2009314719

PATIENT
  Age: 78 Year
  Sex: Male

DRUGS (7)
  1. SUNITINIB MALATE [Suspect]
     Indication: CANCER HORMONAL THERAPY
     Dosage: 50 MG, 1X/DAY
     Route: 048
     Dates: start: 20091030, end: 20091125
  2. PREVISCAN [Interacting]
     Indication: CIRCULATING ANTICOAGULANT
     Dosage: 17.5 MG, 1X/DAY
     Route: 048
     Dates: start: 20090425, end: 20091127
  3. IKOREL [Concomitant]
     Indication: ANGINA PECTORIS
     Dosage: 20 MG, 2X/DAY
     Route: 048
     Dates: end: 20091125
  4. RAMIPRIL [Concomitant]
     Indication: HYPERTENSION
     Dosage: 10 MG, 1X/DAY
     Route: 048
     Dates: end: 20091126
  5. DIAMICRON [Concomitant]
     Indication: TYPE 2 DIABETES MELLITUS
     Dosage: 30 MG, 2X/DAY
     Route: 048
     Dates: start: 20020101
  6. PRAVASTATIN SODIUM [Concomitant]
     Dosage: 20 MG, 1X/DAY
     Route: 048
  7. NEXIUM [Concomitant]
     Indication: GASTROOESOPHAGEAL REFLUX DISEASE
     Dosage: 40 MG, 1X/DAY
     Route: 048
     Dates: end: 20091125

REACTIONS (3)
  - DRUG INTERACTION [None]
  - MELAENA [None]
  - OVERDOSE [None]
